FAERS Safety Report 18135383 (Version 1)
Quarter: 2020Q3

REPORT INFORMATION
  Report Type: Spontaneous
  Country: CA (occurrence: CA)
  Receive Date: 20200811
  Receipt Date: 20200811
  Transmission Date: 20201103
  Serious: Yes (Other)
  Sender: FDA-Public Use
  Company Number: CA-PFIZER INC-2020305654

PATIENT
  Sex: Female

DRUGS (1)
  1. ZOLEDRONIC ACID [Suspect]
     Active Substance: ZOLEDRONIC ACID
     Dosage: 1 EVERY 1 YEARS
     Route: 051

REACTIONS (13)
  - Affect lability [Unknown]
  - Dysentery [Unknown]
  - Pain in jaw [Unknown]
  - Diarrhoea [Unknown]
  - Influenza like illness [Unknown]
  - Hypoaesthesia [Unknown]
  - Abdominal pain upper [Unknown]
  - Off label use [Unknown]
  - Arthritis [Unknown]
  - Bone pain [Unknown]
  - Ear pain [Unknown]
  - Eye pain [Unknown]
  - Feeling abnormal [Unknown]
